FAERS Safety Report 24278407 (Version 1)
Quarter: 2024Q3

REPORT INFORMATION
  Report Type: Spontaneous
  Country: CH (occurrence: CH)
  Receive Date: 20240903
  Receipt Date: 20240903
  Transmission Date: 20241016
  Serious: Yes (Death, Hospitalization, Other)
  Sender: SAMSUNG BIOEPIS
  Company Number: CH-SAMSUNG BIOEPIS-SB-2024-25764

PATIENT
  Age: 78 Year
  Sex: Female

DRUGS (3)
  1. ADALIMUMAB [Suspect]
     Active Substance: ADALIMUMAB
     Indication: Rheumatoid arthritis
     Dates: start: 202109, end: 202308
  2. ADALIMUMAB [Suspect]
     Active Substance: ADALIMUMAB
     Dates: start: 202309
  3. METHOTREXATE [Concomitant]
     Active Substance: METHOTREXATE
     Indication: Rheumatoid arthritis

REACTIONS (6)
  - Bovine tuberculosis [Fatal]
  - Hypercalcaemia [Unknown]
  - Acute kidney injury [Unknown]
  - Sarcoidosis [Recovering/Resolving]
  - Hepatitis [Unknown]
  - Splenitis [Unknown]

NARRATIVE: CASE EVENT DATE: 20230601
